FAERS Safety Report 4384302-3 (Version None)
Quarter: 2004Q2

REPORT INFORMATION
  Report Type: 
  Country: None (occurrence: None)
  Receive Date: 20040624
  Receipt Date: 20040615
  Transmission Date: 20050107
  Serious: Yes (Other)
  Sender: FDA-Public Use
  Company Number: US-ROCHE-371339

PATIENT
  Age: 17 Year
  Sex: Female

DRUGS (1)
  1. ACCUTANE [Suspect]
     Indication: DRUG USE FOR UNKNOWN INDICATION
     Route: 048
     Dates: start: 20010615, end: 20011015

REACTIONS (6)
  - ABNORMAL BEHAVIOUR [None]
  - ILL-DEFINED DISORDER [None]
  - MOOD ALTERED [None]
  - MOROSE [None]
  - SCHIZOPHRENIA [None]
  - SUICIDE ATTEMPT [None]
